FAERS Safety Report 6112778-X (Version None)
Quarter: 2009Q1

REPORT INFORMATION
  Report Type: 
  Country: None (occurrence: None)
  Receive Date: 20090312
  Receipt Date: 20090106
  Transmission Date: 20090719
  Serious: Yes (Death, Other)
  Sender: FDA-Public Use
  Company Number: DE-PFIZER INC-2008150179

PATIENT
  Sex: Female

DRUGS (14)
  1. SOMATROPIN [Suspect]
     Indication: HYPOPHYSITIS
     Dosage: 0.6 MG, 1X/DAY
     Route: 058
     Dates: start: 20050405
  2. DESMOPRESSIN ACETATE [Concomitant]
     Indication: DIABETES INSIPIDUS
     Dosage: 0.10 ML, UNK
     Dates: start: 20040715
  3. HYDROCORTISONE [Concomitant]
     Indication: ADRENAL INSUFFICIENCY
     Dosage: 15 MG, 1X/DAY
     Dates: start: 20040815
  4. LEVOTHYROXINE SODIUM [Concomitant]
     Indication: HYPOTHYROIDISM
     Dosage: 50 UG, 1X/DAY
     Dates: start: 20040815
  5. LEVOTHYROXINE SODIUM [Concomitant]
     Dosage: 75 UG, 1X/DAY
     Dates: start: 20050315
  6. PRESOMEN [Concomitant]
     Indication: HYPOGONADISM
     Dosage: 0.30 MG, 1X/DAY
     Dates: start: 20050315, end: 20050909
  7. CLINDAMYCIN [Concomitant]
     Indication: SINUSITIS
     Dosage: 300 MG, 1X/DAY
     Dates: start: 20050909, end: 20050909
  8. URBASON [Concomitant]
     Indication: HYPERSENSITIVITY
     Dosage: 250 MG, 1X/DAY
     Dates: start: 20050909, end: 20050910
  9. URBASON [Concomitant]
     Dosage: 80 MG, 1X/DAY
     Dates: start: 20050911, end: 20050911
  10. URBASON [Concomitant]
     Dosage: 40 MG, 1X/DAY
     Dates: start: 20050912, end: 20050913
  11. URBASON [Concomitant]
     Dosage: 20 MG, 1X/DAY
     Dates: start: 20050914, end: 20050915
  12. URBASON [Concomitant]
     Dosage: 10 MG, 1X/DAY
     Dates: start: 20050916, end: 20050918
  13. CALCIUM [Concomitant]
     Indication: OSTEOPENIA
     Dosage: 1000 MG, 1X/DAY
     Dates: start: 20050916
  14. TRIAMCINOLONE [Concomitant]
     Indication: GRANULOMA ANNULARE
     Dosage: 4 TIMES, AS NEEDED
     Dates: start: 20070903

REACTIONS (8)
  - CARDIAC FAILURE [None]
  - CEREBROVASCULAR ACCIDENT [None]
  - HEPARIN-INDUCED THROMBOCYTOPENIA [None]
  - INTESTINAL INFARCTION [None]
  - MULTI-ORGAN FAILURE [None]
  - MYOCARDITIS [None]
  - PANCREATIC NECROSIS [None]
  - SPLENIC INFARCTION [None]
